FAERS Safety Report 9231888 (Version 1)
Quarter: 2013Q2

REPORT INFORMATION
  Report Type: Spontaneous
  Country: US (occurrence: US)
  Receive Date: 20130415
  Receipt Date: 20130415
  Transmission Date: 20140414
  Serious: Yes (Hospitalization)
  Sender: FDA-Public Use
  Company Number: US-COVIDIEN/TYCO HEALTHCARE/MALLINCKRODT-T201204617

PATIENT
  Age: 49 Year
  Sex: Female
  Weight: 77.27 kg

DRUGS (5)
  1. FENTANYL CITRATE [Suspect]
     Dosage: APPROX. 275 MCG
  2. HYDROCODONE/ACETAMINOPHEN [Suspect]
     Dosage: APPROX. 2 TABS/PILLS/CAPSULES
  3. OXYCODONE/ACETAMINOPHEN [Suspect]
     Dosage: APPROX. 45 TABS/PILLS/CAPSULES
  4. CARISOPRODOL [Suspect]
     Dosage: APPROX. 2 TABS/PILLS/CAPSULES
  5. NOTIC/ANTI-ANXIETYOR ANTI-PSYCHOTIC DRUG [Suspect]
     Dosage: APPROX. 30 TABS/PILLS/CAPSULES

REACTIONS (1)
  - Suicide attempt [Unknown]
